FAERS Safety Report 5213710-3 (Version None)
Quarter: 2007Q1

REPORT INFORMATION
  Report Type: 
  Country: None (occurrence: None)
  Receive Date: 20070119
  Receipt Date: 20070117
  Transmission Date: 20070707
  Serious: Yes (Death, Life-Threatening, Hospitalization)
  Sender: FDA-Public Use
  Company Number: US-BRISTOL-MYERS SQUIBB COMPANY-13597794

PATIENT
  Age: 71 Year
  Sex: Male

DRUGS (12)
  1. CISPLATIN [Suspect]
     Indication: METASTATIC NEOPLASM
     Route: 041
     Dates: start: 20061115, end: 20061115
  2. FLUOROURACIL [Suspect]
     Indication: METASTATIC NEOPLASM
     Route: 041
     Dates: start: 20061115, end: 20061120
  3. NEXIUM [Concomitant]
     Indication: GASTROOESOPHAGEAL REFLUX DISEASE
     Route: 048
     Dates: start: 20060901
  4. LISINOPRIL [Concomitant]
     Indication: HYPERTENSION
     Route: 048
     Dates: start: 20030101
  5. METFORMIN [Concomitant]
     Indication: DIABETES MELLITUS
     Route: 048
     Dates: start: 20040101
  6. DARVOCET [Concomitant]
     Indication: PAIN
     Route: 048
     Dates: start: 20061001
  7. IMODIUM [Concomitant]
     Indication: DIARRHOEA
     Route: 048
     Dates: start: 20061119
  8. LOMOTIL [Concomitant]
     Indication: DIARRHOEA
     Route: 048
     Dates: start: 20061122
  9. ZOFRAN [Concomitant]
     Indication: NAUSEA
     Route: 048
     Dates: start: 20061122
  10. COMPAZINE [Concomitant]
     Indication: NAUSEA
     Route: 048
     Dates: start: 20061117
  11. CARAFATE [Concomitant]
     Indication: STOMATITIS
     Route: 048
     Dates: start: 20061120
  12. MAGIC MOUTHWASH [Concomitant]
     Indication: STOMATITIS
     Route: 048
     Dates: start: 20061121

REACTIONS (1)
  - INTESTINAL ISCHAEMIA [None]
